FAERS Safety Report 9286985 (Version 1)
Quarter: 2013Q2

REPORT INFORMATION
  Report Type: Spontaneous
  Country: IT (occurrence: IT)
  Receive Date: 20130513
  Receipt Date: 20130513
  Transmission Date: 20140414
  Serious: Yes (Other)
  Sender: FDA-Public Use
  Company Number: PHHY2013IT046381

PATIENT
  Age: 51 Year
  Sex: Female

DRUGS (7)
  1. ETORICOXIB [Suspect]
     Dosage: 45 MG, UNK
     Route: 048
  2. ETORICOXIB [Suspect]
     Dosage: 90 MG, UNK
     Route: 048
  3. KETOPROFEN [Suspect]
     Route: 030
  4. ACETYLSALICYLIC ACID [Suspect]
     Dosage: 100 MG, UNK
  5. RUPATADINE [Concomitant]
     Dosage: 10 MG, UNK
     Route: 048
  6. PARACETAMOL [Concomitant]
     Dosage: UNK UKN, UNK
  7. TRAMADOL [Concomitant]
     Dosage: 50 MG, UNK
     Route: 048

REACTIONS (1)
  - Urticaria [Unknown]
